FAERS Safety Report 9631836 (Version 1)
Quarter: 2013Q4

REPORT INFORMATION
  Report Type: Spontaneous
  Country: NZ (occurrence: None)
  Receive Date: 20131016
  Receipt Date: 20131016
  Transmission Date: 20140711
  Serious: Yes (Other)
  Sender: FDA-Public Use
  Company Number: IPC201310-000398

PATIENT
  Age: 78 Year
  Sex: 0

DRUGS (3)
  1. WARFARIN [Suspect]
     Indication: ATRIAL FIBRILLATION
  2. WARFARIN [Suspect]
     Indication: MITRAL VALVE REPLACEMENT
  3. BENZBROMARONE [Suspect]
     Indication: GOUT

REACTIONS (3)
  - International normalised ratio increased [None]
  - Contusion [None]
  - Potentiating drug interaction [None]
